FAERS Safety Report 21435247 (Version 1)
Quarter: 2022Q4

REPORT INFORMATION
  Report Type: Report from Study
  Country: US (occurrence: US)
  Receive Date: 20221010
  Receipt Date: 20221010
  Transmission Date: 20230113
  Serious: Yes (Hospitalization)
  Sender: FDA-Public Use
  Company Number: US-MYLANLABS-2022M1112294

PATIENT
  Age: 31 Year
  Sex: Male

DRUGS (4)
  1. ADALIMUMAB [Suspect]
     Active Substance: ADALIMUMAB
     Indication: Chronic granulomatous disease
     Dosage: UNK
     Route: 065
  2. ADALIMUMAB [Suspect]
     Active Substance: ADALIMUMAB
     Indication: Inflammatory bowel disease
  3. VEDOLIZUMAB [Concomitant]
     Active Substance: VEDOLIZUMAB
     Indication: Chronic granulomatous disease
     Dosage: UNK
     Route: 065
  4. VEDOLIZUMAB [Concomitant]
     Active Substance: VEDOLIZUMAB
     Indication: Inflammatory bowel disease

REACTIONS (1)
  - Drug ineffective [Unknown]
